FAERS Safety Report 4828451-1 (Version None)
Quarter: 2005Q4

REPORT INFORMATION
  Report Type: 
  Country: None (occurrence: None)
  Receive Date: 20051115
  Receipt Date: 20051104
  Transmission Date: 20060501
  Serious: Yes (Death, Hospitalization)
  Sender: FDA-Public Use
  Company Number: US-JNJFOC-20051101875

PATIENT
  Age: 6 Year
  Sex: Male
  Weight: 38 kg

DRUGS (8)
  1. ACETAMINOPHEN [Suspect]
  2. ACETAMINOPHEN [Suspect]
     Indication: DRUG USE FOR UNKNOWN INDICATION
     Dosage: BRAND A: 750MG TID
  3. ACETAMINOPHEN [Suspect]
  4. ACETAMINOPHEN [Suspect]
     Dosage: BRAND B: 250MG/KG/DAY
  5. PENICILLIN [Concomitant]
     Route: 048
  6. PROMETHAZINE [Concomitant]
  7. HALOPERIDOL [Concomitant]
  8. PHENOBARBITONE [Concomitant]

REACTIONS (7)
  - CONDITION AGGRAVATED [None]
  - HEPATIC CYST [None]
  - HEPATIC ENCEPHALOPATHY [None]
  - HEPATIC FAILURE [None]
  - HEPATIC NECROSIS [None]
  - HEPATOMEGALY [None]
  - OVERDOSE [None]
